FAERS Safety Report 4313714-9 (Version None)
Quarter: 2004Q1

REPORT INFORMATION
  Report Type: 
  Country: None (occurrence: None)
  Receive Date: 20040305
  Receipt Date: 20040303
  Transmission Date: 20041129
  Serious: Yes (Life-Threatening)
  Sender: FDA-Public Use
  Company Number: MK200402-0056-1

PATIENT
  Age: 70 Year
  Sex: Male

DRUGS (1)
  1. OPTIRAY 320 [Suspect]
     Indication: COMPUTERISED TOMOGRAM
     Dosage: 115 CC, IV, ONCE
     Dates: start: 20040204, end: 20040204

REACTIONS (4)
  - AIR EMBOLISM [None]
  - CARDIAC DISORDER [None]
  - IATROGENIC INJURY [None]
  - PROCEDURAL COMPLICATION [None]
